FAERS Safety Report 5014349-5 (Version None)
Quarter: 2006Q2

REPORT INFORMATION
  Report Type: 
  Country: None (occurrence: None)
  Receive Date: 20060411
  Receipt Date: 20060303
  Transmission Date: 20061013
  Serious: No
  Sender: FDA-Public Use
  Company Number: A03200601166

PATIENT
  Age: 73 Year
  Sex: Male

DRUGS (2)
  1. UROXATRAL [Suspect]
     Indication: URINARY TRACT DISORDER
     Dosage: ORAL
     Route: 048
  2. TADALAFIL [Concomitant]

REACTIONS (1)
  - BRONCHOSPASM [None]
